FAERS Safety Report 6703879-3 (Version None)
Quarter: 2010Q2

REPORT INFORMATION
  Report Type: 
  Country: None (occurrence: None)
  Receive Date: 20100430
  Receipt Date: 20100422
  Transmission Date: 20101027
  Serious: Yes (Other)
  Sender: FDA-Public Use
  Company Number: CA-ROCHE-698964

PATIENT
  Age: 16 Year
  Sex: Male
  Weight: 109.8 kg

DRUGS (1)
  1. ACCUTANE [Suspect]
     Indication: DRUG USE FOR UNKNOWN INDICATION
     Route: 048

REACTIONS (4)
  - DYSTHYMIC DISORDER [None]
  - FEELING OF DESPAIR [None]
  - PERSONALITY CHANGE [None]
  - SUICIDAL IDEATION [None]
